FAERS Safety Report 9678140 (Version 2)
Quarter: 2013Q4

REPORT INFORMATION
  Report Type: Spontaneous
  Country: CN (occurrence: None)
  Receive Date: 20131106
  Receipt Date: 20131119
  Transmission Date: 20140711
  Serious: Yes (Death, Hospitalization, Other)
  Sender: FDA-Public Use
  Company Number: UTC-035202

PATIENT
  Sex: Female
  Weight: 37 kg

DRUGS (5)
  1. REMODULIN [Suspect]
     Indication: PULMONARY ARTERIAL HYPERTENSION
     Dosage: 48.96 UG/KG ( 0.034 UG/KG, 1 IN 1 MIN), SUBCUTANEOUS
     Route: 058
     Dates: start: 20130503
  2. PENICILLAMINE ( UNKNOWN) [Concomitant]
  3. PREDNISOLONE ( UNKNOWN) [Concomitant]
  4. ULTRACET ( UNKNOWN) [Concomitant]
  5. REVATIO ( SILDENAFIL CITRATE) ( UNKNOWN) [Concomitant]

REACTIONS (17)
  - Thrombocytopenia [None]
  - Haemoptysis [None]
  - Respiratory failure [None]
  - Right ventricular failure [None]
  - Oxygen saturation decreased [None]
  - Oedema peripheral [None]
  - Ascites [None]
  - General physical health deterioration [None]
  - Regurgitation [None]
  - Pericardial effusion [None]
  - Pleural effusion [None]
  - Respiratory arrest [None]
  - Pulmonary hypertension [None]
  - Blood urea increased [None]
  - Blood bilirubin increased [None]
  - Blood sodium decreased [None]
  - Scleroderma [None]
